FAERS Safety Report 6122790-2 (Version None)
Quarter: 2009Q1

REPORT INFORMATION
  Report Type: 
  Country: None (occurrence: None)
  Receive Date: 20090318
  Receipt Date: 20081030
  Transmission Date: 20090719
  Serious: No
  Sender: FDA-Public Use
  Company Number: US-AMGEN-KDL303823

PATIENT
  Sex: Female

DRUGS (7)
  1. NEULASTA [Suspect]
     Indication: CHEMOTHERAPY
     Route: 058
     Dates: start: 20080825
  2. CYCLOPHOSPHAMIDE [Concomitant]
  3. ETOPOSIDE [Concomitant]
  4. VINCRISTINE [Concomitant]
  5. CARBOPLATIN [Concomitant]
  6. SEPTRA [Concomitant]
  7. NYSTATIN [Concomitant]

REACTIONS (4)
  - ACCIDENTAL OVERDOSE [None]
  - BONE PAIN [None]
  - PLATELET COUNT DECREASED [None]
  - WHITE BLOOD CELL COUNT INCREASED [None]
